FAERS Safety Report 16879296 (Version 2)
Quarter: 2019Q4

REPORT INFORMATION
  Report Type: Spontaneous
  Country: CA (occurrence: CA)
  Receive Date: 20191003
  Receipt Date: 20191008
  Transmission Date: 20200122
  Serious: Yes (Hospitalization, Other)
  Sender: FDA-Public Use
  Company Number: CA-SAMSUNG BIOEPIS-SB-2019-28721

PATIENT
  Age: 56 Year
  Sex: Female

DRUGS (2)
  1. METHOTREXATE. [Concomitant]
     Active Substance: METHOTREXATE
     Indication: PRODUCT USED FOR UNKNOWN INDICATION
     Route: 058
  2. INFLIXIMAB [Suspect]
     Active Substance: INFLIXIMAB
     Indication: CROHN^S DISEASE
     Route: 042

REACTIONS (13)
  - Atrial flutter [Recovered/Resolved]
  - Pericarditis [Recovered/Resolved]
  - Arrhythmia [Recovered/Resolved]
  - Heart rate irregular [Recovered/Resolved]
  - Palpitations [Recovered/Resolved]
  - Pleural effusion [Recovered/Resolved]
  - Productive cough [Recovered/Resolved]
  - Disease recurrence [Recovered/Resolved]
  - Body temperature increased [Recovered/Resolved]
  - Feeling cold [Recovered/Resolved]
  - Blood pressure fluctuation [Recovered/Resolved]
  - Cerebrovascular accident [Recovered/Resolved]
  - Condition aggravated [Recovered/Resolved]
